FAERS Safety Report 9515685 (Version 1)
Quarter: 2013Q1

REPORT INFORMATION
  Report Type: Spontaneous
  Country: US (occurrence: None)
  Receive Date: 20130305
  Receipt Date: 20130305
  Transmission Date: 20140127
  Serious: Yes (Hospitalization)
  Sender: FDA-Public Use
  Company Number: 163-21880-12120798

PATIENT
  Age: 66 Year
  Sex: Male

DRUGS (9)
  1. REVLIMID (LENALIDOMIDE) (CAPSULES) [Suspect]
     Indication: LYMPHOMA
     Route: 048
     Dates: start: 20121114
  2. ZOFRAN (ONDANSETRON HYDROCHLORIDE) [Concomitant]
  3. ZOCOR (SIMVASTATIN) [Concomitant]
  4. TREANDA (BENDAMUSTINE HYDROCHLORIDE) [Concomitant]
  5. TOPROL XL (METOPROLOL SUCCINATE) (100 MILLIGRAM) (METOPROLOL SUCCINATE) [Concomitant]
  6. SOLU-MEDROL (METHYLPREDNISOLONE SODIUM SUCCINATE) [Concomitant]
  7. RITUXAN (RITUXIMAB) [Concomitant]
  8. REGLAN (METOCLOPRAMIDE) [Concomitant]
  9. PROCRIT (ERYTHROPOIETIN) [Concomitant]

REACTIONS (1)
  - Red blood cell count decreased [None]
